FAERS Safety Report 18606465 (Version 2)
Quarter: 2024Q2

REPORT INFORMATION
  Report Type: Spontaneous
  Country: US (occurrence: US)
  Receive Date: 20201211
  Receipt Date: 20240625
  Transmission Date: 20240716
  Serious: No
  Sender: FDA-Public Use
  Company Number: US-SANOFI-00358477

PATIENT
  Sex: Female

DRUGS (1)
  1. TUBERCULIN PURIFIED PROTEIN DERIVATIVE [Suspect]
     Active Substance: TUBERCULIN PURIFIED PROTEIN DERIVATIVE
     Indication: Tuberculin test
     Dosage: UNK
     Route: 065

REACTIONS (1)
  - No adverse event [Unknown]
